FAERS Safety Report 9132293 (Version 1)
Quarter: 2013Q1

REPORT INFORMATION
  Report Type: Spontaneous
  Country: IT (occurrence: IT)
  Receive Date: 20130301
  Receipt Date: 20130301
  Transmission Date: 20140127
  Serious: Yes (Hospitalization)
  Sender: FDA-Public Use
  Company Number: IT-TEVA-387902ISR

PATIENT
  Age: 41 Year
  Sex: Female

DRUGS (1)
  1. CARBILITHIUM [Suspect]
     Dosage: 1200 MILLIGRAM DAILY;
     Route: 048
     Dates: start: 20121006, end: 20121013

REACTIONS (3)
  - Medication error [Recovering/Resolving]
  - Overdose [Recovering/Resolving]
  - Chest pain [Recovering/Resolving]
